FAERS Safety Report 24267769 (Version 3)
Quarter: 2024Q3

REPORT INFORMATION
  Report Type: Spontaneous
  Country: US (occurrence: US)
  Receive Date: 20240830
  Receipt Date: 20240918
  Transmission Date: 20241017
  Serious: No
  Sender: AMGEN
  Company Number: US-AMGEN-USASP2024168307

PATIENT
  Age: 62 Year
  Sex: Female
  Weight: 58.503 kg

DRUGS (1)
  1. NEULASTA [Suspect]
     Active Substance: PEGFILGRASTIM
     Indication: Prophylaxis
     Dosage: UNK
     Route: 065

REACTIONS (4)
  - Device use error [Unknown]
  - Device adhesion issue [Unknown]
  - Incorrect dose administered by device [Unknown]
  - Device placement issue [Unknown]

NARRATIVE: CASE EVENT DATE: 20240820
